FAERS Safety Report 7075438-7 (Version None)
Quarter: 2010Q4

REPORT INFORMATION
  Report Type: 
  Country: None (occurrence: None)
  Receive Date: 20101030
  Receipt Date: 20101012
  Transmission Date: 20110411
  Serious: No
  Sender: FDA-Public Use
  Company Number: US-WYE-H17621610

PATIENT
  Sex: Female
  Weight: 95.34 kg

DRUGS (6)
  1. PRISTIQ [Suspect]
     Indication: DEPRESSION
     Route: 048
     Dates: start: 20100401
  2. SOMA [Concomitant]
  3. SINGULAIR [Concomitant]
  4. RESTORIL [Concomitant]
  5. TRAMADOL [Concomitant]
  6. PRILOSEC [Concomitant]

REACTIONS (6)
  - COORDINATION ABNORMAL [None]
  - FATIGUE [None]
  - INSOMNIA [None]
  - MYDRIASIS [None]
  - SOMNOLENCE [None]
  - WEIGHT INCREASED [None]
